FAERS Safety Report 11294946 (Version 1)
Quarter: 2015Q3

REPORT INFORMATION
  Report Type: Report from Study
  Country: US (occurrence: US)
  Receive Date: 20150723
  Receipt Date: 20150723
  Transmission Date: 20151125
  Serious: Yes (Other)
  Sender: FDA-Public Use
  Company Number: US-MERCK-1507USA007793

PATIENT

DRUGS (3)
  1. REBETOL [Suspect]
     Active Substance: RIBAVIRIN
     Indication: CHRONIC HEPATITIS C
     Dosage: 1000MG/KG [{75 KG] OR 1200 MG/KG [} OR EQUAL TO 75 KG], BID
     Route: 048
  2. BECLABUVIR [Suspect]
     Active Substance: BECLABUVIR
     Indication: CHRONIC HEPATITIS C
     Dosage: 75MG OR 150MG, BID
     Route: 048
  3. PEGINTERFERON ALFA-2A [Suspect]
     Active Substance: PEGINTERFERON ALFA-2A
     Indication: CHRONIC HEPATITIS C
     Dosage: 180 MICROGRAM, QW
     Route: 058

REACTIONS (2)
  - Leukopenia [Unknown]
  - Anaemia [Unknown]
